FAERS Safety Report 18830741 (Version 3)
Quarter: 2021Q1

REPORT INFORMATION
  Report Type: Spontaneous
  Country: US (occurrence: US)
  Receive Date: 20210203
  Receipt Date: 20210217
  Transmission Date: 20210419
  Serious: Yes (Life-Threatening, Hospitalization, Other)
  Sender: FDA-Public Use
  Company Number: US-AUROBINDO-AUR-APL-2021-003443

PATIENT
  Age: 57 Year
  Sex: Female
  Weight: 59.5 kg

DRUGS (5)
  1. LEVETIRACETAM. [Suspect]
     Active Substance: LEVETIRACETAM
     Indication: GENERALISED ANXIETY DISORDER
     Dosage: 750 MILLIGRAM, TWO TIMES A DAY (INCREASED DOSING)
     Route: 048
     Dates: start: 2018
  2. CLONAZEPAM. [Suspect]
     Active Substance: CLONAZEPAM
     Dosage: 0.5 MILLIGRAM, 3 TIMES A DAY
     Route: 065
  3. DIVALPROEX [Suspect]
     Active Substance: DIVALPROEX SODIUM
     Indication: CHOREA
     Dosage: 250 MILLIGRAM, 3 TIMES A DAY
     Route: 048
     Dates: start: 20181015, end: 20181107
  4. LEVETIRACETAM. [Suspect]
     Active Substance: LEVETIRACETAM
     Indication: CHOREA
     Dosage: 250 MILLIGRAM, TWO TIMES A DAY
     Route: 048
  5. CLONAZEPAM. [Suspect]
     Active Substance: CLONAZEPAM
     Indication: CHOREA
     Dosage: 0.5 MILLIGRAM, TWO TIMES A DAY
     Route: 065

REACTIONS (15)
  - Sepsis [Unknown]
  - Mental status changes [Unknown]
  - Escherichia bacteraemia [Unknown]
  - Drug ineffective [Unknown]
  - Subdural haematoma [Recovering/Resolving]
  - Periorbital haemorrhage [Unknown]
  - Eye contusion [Unknown]
  - Contusion [Unknown]
  - Mouth haemorrhage [Recovered/Resolved]
  - Brain midline shift [Recovering/Resolving]
  - Ecchymosis [Unknown]
  - Toxicity to various agents [Recovering/Resolving]
  - Urinary tract infection [Unknown]
  - Thrombocytopenia [Recovered/Resolved]
  - Vaginal haemorrhage [Recovered/Resolved]

NARRATIVE: CASE EVENT DATE: 201811
